FAERS Safety Report 21957225 (Version 1)
Quarter: 2023Q1

REPORT INFORMATION
  Report Type: Spontaneous
  Country: RU (occurrence: None)
  Receive Date: 20230206
  Receipt Date: 20230206
  Transmission Date: 20230418
  Serious: Yes (Hospitalization)
  Sender: FDA-Public Use
  Company Number: RU-Eisai Medical Research-EC-2023-132959

PATIENT
  Age: 9 Year
  Sex: Male
  Weight: 35 kg

DRUGS (4)
  1. FYCOMPA [Suspect]
     Active Substance: PERAMPANEL
     Indication: Seizure
     Dosage: FREQUENCY UNKNOWN
     Route: 048
     Dates: start: 202208, end: 2022
  2. FYCOMPA [Suspect]
     Active Substance: PERAMPANEL
     Dosage: FREQUENCY UNKNOWN
     Route: 048
     Dates: start: 2022, end: 202210
  3. FYCOMPA [Suspect]
     Active Substance: PERAMPANEL
     Dosage: FREQUENCY UNKNOWN
     Route: 048
     Dates: start: 202210, end: 202211
  4. TOPIRAMATE [Concomitant]
     Active Substance: TOPIRAMATE
     Indication: Epileptic encephalopathy
     Dosage: FREQUENCY UNKNOWN
     Route: 065

REACTIONS (2)
  - Seizure [Recovered/Resolved with Sequelae]
  - Ataxia [Recovered/Resolved with Sequelae]

NARRATIVE: CASE EVENT DATE: 20220915
